FAERS Safety Report 24618654 (Version 3)
Quarter: 2025Q1

REPORT INFORMATION
  Report Type: Spontaneous
  Country: SI (occurrence: SI)
  Receive Date: 20241114
  Receipt Date: 20250218
  Transmission Date: 20250408
  Serious: Yes (Hospitalization, Other)
  Sender: ROCHE
  Company Number: SI-ROCHE-10000129218

PATIENT
  Age: 72 Year
  Sex: Female

DRUGS (4)
  1. TRASTUZUMAB [Suspect]
     Active Substance: TRASTUZUMAB
     Indication: HER2 positive breast cancer
     Route: 065
     Dates: start: 202308, end: 202401
  2. PERTUZUMAB [Suspect]
     Active Substance: PERTUZUMAB
     Indication: HER2 positive breast cancer
     Route: 065
     Dates: start: 202308, end: 202401
  3. CYCLOPHOSPHAMIDE [Suspect]
     Active Substance: CYCLOPHOSPHAMIDE
     Indication: HER2 positive breast cancer
     Route: 065
     Dates: start: 202308, end: 202401
  4. PACLITAXEL [Suspect]
     Active Substance: PACLITAXEL
     Indication: HER2 positive breast cancer
     Route: 065
     Dates: start: 202308, end: 202401

REACTIONS (3)
  - Cardiac failure [Unknown]
  - Pulmonary embolism [Unknown]
  - Venous thrombosis [Unknown]

NARRATIVE: CASE EVENT DATE: 20240101
